FAERS Safety Report 8267143-6 (Version None)
Quarter: 2012Q2

REPORT INFORMATION
  Report Type: 
  Country: None (occurrence: None)
  Receive Date: 20120409
  Receipt Date: 20120330
  Transmission Date: 20120825
  Serious: Yes (Hospitalization, Other)
  Sender: FDA-Public Use
  Company Number: US-BAYER-2011-114342

PATIENT
  Age: 49 Year
  Sex: Female
  Weight: 51 kg

DRUGS (3)
  1. IBUPROFEN [Concomitant]
  2. YAZ [Suspect]
     Indication: PREMENSTRUAL SYNDROME
     Dosage: UNK
     Route: 048
     Dates: start: 20061015, end: 20090101
  3. YAZ [Suspect]
     Indication: MENSTRUAL DISORDER

REACTIONS (6)
  - PAIN [None]
  - MUSCULOSKELETAL PAIN [None]
  - DEEP VEIN THROMBOSIS [None]
  - LUNG NEOPLASM [None]
  - PULMONARY EMBOLISM [None]
  - CHEST PAIN [None]
